FAERS Safety Report 4319749-4 (Version None)
Quarter: 2004Q1

REPORT INFORMATION
  Report Type: 
  Country: None (occurrence: None)
  Receive Date: 20040319
  Receipt Date: 20040316
  Transmission Date: 20041129
  Serious: Yes (Other)
  Sender: FDA-Public Use
  Company Number: US-GLAXOSMITHKLINE-A0502995A

PATIENT
  Age: 16 Year
  Sex: Female

DRUGS (1)
  1. WELLBUTRIN [Suspect]
     Indication: DEPRESSION
     Route: 048
     Dates: start: 20040101, end: 20040311

REACTIONS (3)
  - CONVULSION [None]
  - DYSPNOEA [None]
  - LOSS OF CONSCIOUSNESS [None]
